FAERS Safety Report 8274744-8 (Version None)
Quarter: 2012Q2

REPORT INFORMATION
  Report Type: 
  Country: None (occurrence: None)
  Receive Date: 20120411
  Receipt Date: 20120403
  Transmission Date: 20120825
  Serious: Yes (Hospitalization, Disabling, Other)
  Sender: FDA-Public Use
  Company Number: US-MERCK-1107USA03607

PATIENT
  Age: 51 Year
  Sex: Female
  Weight: 59 kg

DRUGS (16)
  1. FOSAMAX [Suspect]
     Route: 048
     Dates: start: 19960101, end: 20050101
  2. FOSAMAX PLUS D [Suspect]
     Route: 048
     Dates: start: 19960101, end: 20050101
  3. FOSAMAX [Suspect]
     Route: 048
     Dates: start: 19951201, end: 19980501
  4. FOSAMAX [Suspect]
     Route: 048
     Dates: start: 19960101, end: 20050101
  5. PREDNISONE [Concomitant]
     Indication: SYSTEMIC LUPUS ERYTHEMATOSUS
     Route: 065
     Dates: start: 19850101
  6. [THERAPY UNSPECIFIED] [Concomitant]
     Indication: RHEUMATOID ARTHRITIS
     Route: 065
  7. FOSAMAX [Suspect]
     Indication: OSTEOPENIA
     Route: 048
     Dates: start: 20050101
  8. FOSAMAX [Suspect]
     Route: 048
     Dates: start: 19951201, end: 19980501
  9. PREMARIN [Concomitant]
     Route: 065
     Dates: start: 19740101
  10. FOSAMAX [Suspect]
     Indication: OSTEOPOROSIS
     Route: 048
     Dates: start: 20050101
  11. PLAQUENIL [Concomitant]
     Indication: SYSTEMIC LUPUS ERYTHEMATOSUS
     Route: 065
     Dates: start: 19850101
  12. PLAQUENIL [Concomitant]
     Indication: SJOGREN'S SYNDROME
     Route: 065
     Dates: start: 19850101
  13. PREDNISONE [Concomitant]
     Indication: SJOGREN'S SYNDROME
     Route: 065
     Dates: start: 19850101
  14. CALCIUM (UNSPECIFIED) [Concomitant]
     Route: 065
     Dates: start: 19840101
  15. DIDRONEL [Concomitant]
     Route: 065
     Dates: start: 19930101, end: 19951201
  16. FOSAMAX PLUS D [Suspect]
     Indication: OSTEOPOROSIS
     Route: 048
     Dates: start: 20070716, end: 20100701

REACTIONS (52)
  - CARDIAC DISORDER [None]
  - TRANSIENT ISCHAEMIC ATTACK [None]
  - EMPHYSEMA [None]
  - DRY EYE [None]
  - ANGINA PECTORIS [None]
  - APPENDIX DISORDER [None]
  - FALL [None]
  - HAEMORRHAGIC STROKE [None]
  - VITAMIN B12 DEFICIENCY [None]
  - GALLBLADDER DISORDER [None]
  - CAROTID ARTERY STENOSIS [None]
  - WHEEZING [None]
  - LIGAMENT SPRAIN [None]
  - DIABETES MELLITUS [None]
  - FEMUR FRACTURE [None]
  - SPINAL FRACTURE [None]
  - RIB FRACTURE [None]
  - PNEUMONIA [None]
  - AORTIC ANEURYSM [None]
  - NERVOUSNESS [None]
  - DRY MOUTH [None]
  - INITIAL INSOMNIA [None]
  - IMPAIRED HEALING [None]
  - CATARACT [None]
  - DYSPNOEA [None]
  - CEREBROVASCULAR ACCIDENT [None]
  - BURSITIS [None]
  - DRUG HYPERSENSITIVITY [None]
  - LACUNAR INFARCTION [None]
  - UTERINE DISORDER [None]
  - RHEUMATIC FEVER [None]
  - HYPERTENSION [None]
  - HYPERLIPIDAEMIA [None]
  - CAROTID ARTERY DISEASE [None]
  - DEPRESSION [None]
  - PULMONARY EMBOLISM [None]
  - CHRONIC OBSTRUCTIVE PULMONARY DISEASE [None]
  - OSTEOARTHRITIS [None]
  - GASTROOESOPHAGEAL REFLUX DISEASE [None]
  - INCREASED TENDENCY TO BRUISE [None]
  - CORONARY ARTERY DISEASE [None]
  - OVARIAN DISORDER [None]
  - WEIGHT DECREASED [None]
  - MENTAL DISORDER [None]
  - NEPHROLITHIASIS [None]
  - HEADACHE [None]
  - IODINE ALLERGY [None]
  - BLOOD CHOLESTEROL INCREASED [None]
  - ANXIETY [None]
  - BACK PAIN [None]
  - PHOTOSENSITIVITY REACTION [None]
  - ASTHMA [None]
